FAERS Safety Report 11974698 (Version 1)
Quarter: 2016Q1

REPORT INFORMATION
  Report Type: Report from Study
  Country: US (occurrence: US)
  Receive Date: 20160128
  Receipt Date: 20160128
  Transmission Date: 20160526
  Serious: Yes (Hospitalization)
  Sender: FDA-Public Use
  Company Number: US-ABBVIE-15K-163-1395827-00

PATIENT
  Age: 61 Year
  Sex: Female

DRUGS (1)
  1. HUMIRA [Suspect]
     Active Substance: ADALIMUMAB
     Indication: RHEUMATOID ARTHRITIS
     Route: 065
     Dates: start: 20150326, end: 201505

REACTIONS (8)
  - Pneumonia [Unknown]
  - Pollakiuria [Not Recovered/Not Resolved]
  - Dysuria [Not Recovered/Not Resolved]
  - Oxygen saturation decreased [Unknown]
  - Blood cholesterol increased [Unknown]
  - Atrial fibrillation [Unknown]
  - Urinary tract infection [Recovered/Resolved]
  - Micturition urgency [Not Recovered/Not Resolved]

NARRATIVE: CASE EVENT DATE: 2015
